FAERS Safety Report 8617363-3 (Version None)
Quarter: 2012Q3

REPORT INFORMATION
  Report Type: 
  Country: None (occurrence: None)
  Receive Date: 20120823
  Receipt Date: 20120815
  Transmission Date: 20120928
  Serious: Yes (Hospitalization, Disabling, Other)
  Sender: FDA-Public Use
  Company Number: US-009507513-1111USA03161

PATIENT

DRUGS (2)
  1. FOSAMAX [Suspect]
     Indication: OSTEOPENIA
     Dosage: 70 MG, UNK
     Route: 048
     Dates: start: 20010101, end: 20070921
  2. BONIVA [Suspect]

REACTIONS (18)
  - OSTEOPOROSIS [None]
  - OSTEOARTHRITIS [None]
  - STRESS FRACTURE [None]
  - LUMBAR SPINAL STENOSIS [None]
  - JOINT SWELLING [None]
  - FEMUR FRACTURE [None]
  - POST PROCEDURAL HAEMORRHAGE [None]
  - COLONIC POLYP [None]
  - THYMOMA [None]
  - CONTUSION [None]
  - GASTROOESOPHAGEAL REFLUX DISEASE [None]
  - GASTROINTESTINAL ULCER [None]
  - PARAESTHESIA [None]
  - DIVERTICULUM INTESTINAL [None]
  - THYMECTOMY [None]
  - JOINT INJURY [None]
  - HAEMORRHAGE [None]
  - UTERINE DISORDER [None]
